FAERS Safety Report 6442523-X (Version None)
Quarter: 2009Q4

REPORT INFORMATION
  Report Type: 
  Country: None (occurrence: None)
  Receive Date: 20091117
  Receipt Date: 20091105
  Transmission Date: 20100525
  Serious: Yes (Hospitalization)
  Sender: FDA-Public Use
  Company Number: US-CELGENEUS-163-21880-09110516

PATIENT
  Sex: Female

DRUGS (4)
  1. REVLIMID [Suspect]
     Route: 048
     Dates: start: 20080501, end: 20090201
  2. REVLIMID [Suspect]
     Dosage: 10MG-5MG
     Route: 048
     Dates: start: 20080202
  3. REVLIMID [Suspect]
     Route: 048
     Dates: start: 20090301, end: 20090101
  4. REVLIMID [Suspect]
     Route: 048
     Dates: start: 20090901

REACTIONS (1)
  - GASTRIC ULCER [None]
